FAERS Safety Report 20440314 (Version 1)
Quarter: 2022Q1

REPORT INFORMATION
  Report Type: Spontaneous
  Country: US (occurrence: None)
  Receive Date: 20220206
  Receipt Date: 20220206
  Transmission Date: 20220423
  Serious: Yes (Life-Threatening)
  Sender: FDA-Public Use
  Company Number: None

PATIENT
  Age: 28 Year
  Sex: Female
  Weight: 75.15 kg

DRUGS (1)
  1. MEDROXYPROGESTERONE [Suspect]
     Active Substance: MEDROXYPROGESTERONE

REACTIONS (15)
  - Headache [None]
  - Dizziness [None]
  - Nervousness [None]
  - Agitation [None]
  - Alopecia [None]
  - Breast swelling [None]
  - Breast enlargement [None]
  - Breast tenderness [None]
  - Insomnia [None]
  - Weight increased [None]
  - Blood calcium increased [None]
  - Hot flush [None]
  - Urticaria [None]
  - Depression [None]
  - Menstrual disorder [None]

NARRATIVE: CASE EVENT DATE: 20220130
